FAERS Safety Report 18213746 (Version 3)
Quarter: 2021Q1

REPORT INFORMATION
  Report Type: Spontaneous
  Country: US (occurrence: US)
  Receive Date: 20200831
  Receipt Date: 20210209
  Transmission Date: 20210419
  Serious: No
  Sender: FDA-Public Use
  Company Number: US-009507513-2008USA013807

PATIENT
  Age: 75 Year
  Sex: Female

DRUGS (9)
  1. ASMANEX [Suspect]
     Active Substance: MOMETASONE FUROATE
     Indication: ASTHMA
     Dosage: 1 PUFF TWICE DAILY
  2. LOVASTATIN. [Concomitant]
     Active Substance: LOVASTATIN
     Dosage: UNK
  3. VITAMINS (UNSPECIFIED) [Concomitant]
     Active Substance: VITAMINS
     Dosage: UNK
  4. REQUIP [Concomitant]
     Active Substance: ROPINIROLE HYDROCHLORIDE
     Dosage: UNK
  5. DICYCLOMINE HYDROCHLORIDE. [Concomitant]
     Active Substance: DICYCLOMINE HYDROCHLORIDE
     Dosage: UNK
  6. ASMANEX [Suspect]
     Active Substance: MOMETASONE FUROATE
     Indication: ASTHMA
     Dosage: 1 PUFF TWICE A DAY
     Dates: start: 20200724
  7. PRINIVIL [Concomitant]
     Active Substance: LISINOPRIL
     Dosage: UNK
  8. ALLERTEC [Concomitant]
     Active Substance: CETIRIZINE HYDROCHLORIDE
     Dosage: UNK
  9. OMEPRAZOLE. [Concomitant]
     Active Substance: OMEPRAZOLE
     Dosage: UNK

REACTIONS (2)
  - Device malfunction [Unknown]
  - Poor quality device used [Unknown]

NARRATIVE: CASE EVENT DATE: 20200826
